FAERS Safety Report 5775361-1 (Version None)
Quarter: 2008Q2

REPORT INFORMATION
  Report Type: 
  Country: None (occurrence: None)
  Receive Date: 20080617
  Receipt Date: 20080220
  Transmission Date: 20081010
  Serious: Yes (Hospitalization, Other)
  Sender: FDA-Public Use
  Company Number: CZ-MERCK-0802CZE00003

PATIENT
  Sex: Male

DRUGS (2)
  1. ZETIA [Suspect]
     Route: 065
  2. ZOCOR [Concomitant]
     Route: 065

REACTIONS (1)
  - CHOLESTASIS [None]
